FAERS Safety Report 25650233 (Version 1)
Quarter: 2025Q3

REPORT INFORMATION
  Report Type: Spontaneous
  Country: US (occurrence: None)
  Receive Date: 20250806
  Receipt Date: 20250806
  Transmission Date: 20251021
  Serious: Yes (Other)
  Sender: FDA-CTU
  Company Number: None

PATIENT
  Age: 44 Year
  Sex: Female
  Weight: 73.94 kg

DRUGS (2)
  1. SEMAGLUTIDE [Suspect]
     Active Substance: SEMAGLUTIDE
     Indication: Diabetes mellitus
     Dosage: 24 MG/MG WEEKLY INJECTION SUBCUTANEOUS ?
     Route: 058
     Dates: start: 20240424
  2. SEMAGLUTIDE [Suspect]
     Active Substance: SEMAGLUTIDE
     Indication: Cardiac disorder

REACTIONS (4)
  - Neck pain [None]
  - Back pain [None]
  - Arthralgia [None]
  - Arthralgia [None]

NARRATIVE: CASE EVENT DATE: 20240603
